FAERS Safety Report 4705175-2 (Version None)
Quarter: 2005Q3

REPORT INFORMATION
  Report Type: 
  Country: None (occurrence: None)
  Receive Date: 20050701
  Receipt Date: 20050622
  Transmission Date: 20060218
  Serious: Yes (Other)
  Sender: FDA-Public Use
  Company Number: JP-MERCK-0506USA03439

PATIENT
  Age: 60 Year
  Sex: Female
  Weight: 40 kg

DRUGS (11)
  1. ALDOMET [Suspect]
     Indication: HYPERTENSION
     Route: 048
     Dates: start: 20050609, end: 20050615
  2. NORVASC [Concomitant]
     Indication: HYPERTENSION
     Route: 048
     Dates: start: 20050607
  3. NIFEDIPINE [Concomitant]
     Indication: HYPERTENSION
     Route: 048
     Dates: start: 20050607
  4. OLMESARTAN MEDOXOMIL [Concomitant]
     Indication: HYPERTENSION
     Route: 048
     Dates: start: 20050607
  5. HALCION [Concomitant]
     Indication: INSOMNIA
     Route: 048
     Dates: start: 20050607
  6. THYRADIN-S [Concomitant]
     Indication: RENAL FAILURE CHRONIC
     Route: 048
     Dates: start: 20050607
  7. ANPLAG [Concomitant]
     Indication: VASCULAR SHUNT
     Route: 048
     Dates: start: 20050607
  8. CALTAN [Concomitant]
     Indication: HYPERPHOSPHATAEMIA
     Route: 048
     Dates: start: 20050607
  9. CALCIUM LACTATE [Concomitant]
     Indication: HYPERPHOSPHATAEMIA
     Route: 048
     Dates: start: 20050607
  10. CLONAZEPAM [Concomitant]
     Indication: SENSORY DISTURBANCE
     Route: 048
     Dates: start: 20050607
  11. RIZE [Concomitant]
     Indication: INSOMNIA
     Route: 048
     Dates: start: 20050607

REACTIONS (2)
  - AMNESIA [None]
  - DYSARTHRIA [None]
